FAERS Safety Report 5135601-9 (Version None)
Quarter: 2006Q4

REPORT INFORMATION
  Report Type: 
  Country: None (occurrence: None)
  Receive Date: 20061020
  Receipt Date: 20061013
  Transmission Date: 20070319
  Serious: Yes (Life-Threatening, Hospitalization)
  Sender: FDA-Public Use
  Company Number: S06-USA-04285-01

PATIENT
  Age: 63 Year
  Sex: Female

DRUGS (8)
  1. LEXAPRO [Suspect]
     Indication: DEPRESSION
     Dosage: 20 MG QD PO
     Route: 048
     Dates: start: 20040101
  2. MIRTAZAPINE [Suspect]
     Dosage: 300 MG QD
  3. ASPIRIN [Concomitant]
  4. TOPROL-XL [Concomitant]
  5. ZETIA [Concomitant]
  6. LIPITOR [Concomitant]
  7. NIACIN [Concomitant]
  8. VICODIN [Concomitant]

REACTIONS (4)
  - COMA [None]
  - HYPERTENSION [None]
  - RESPIRATORY FAILURE [None]
  - TACHYCARDIA [None]
